FAERS Safety Report 20080681 (Version 1)
Quarter: 2021Q4

REPORT INFORMATION
  Report Type: Spontaneous
  Country: US (occurrence: None)
  Receive Date: 20211116
  Receipt Date: 20211116
  Transmission Date: 20220303
  Serious: Yes (Death)
  Sender: FDA-Public Use
  Company Number: None

PATIENT
  Age: 46 Year
  Sex: Female

DRUGS (18)
  1. PRALUENT [Suspect]
     Active Substance: ALIROCUMAB
     Indication: Hyperlipidaemia
     Dosage: FREQUENCY : EVERY OTHER WEEK;?
     Route: 058
     Dates: start: 20201211, end: 20211026
  2. RANEXA [Concomitant]
     Active Substance: RANOLAZINE
  3. CLONIDINE [Concomitant]
     Active Substance: CLONIDINE
  4. NORETHINDRONE [Concomitant]
     Active Substance: NORETHINDRONE
  5. PANTOPRAZOLE [Concomitant]
     Active Substance: PANTOPRAZOLE
  6. MINOXIDIL [Concomitant]
     Active Substance: MINOXIDIL
  7. ADVAIR HFA [Concomitant]
     Active Substance: FLUTICASONE PROPIONATE\SALMETEROL XINAFOATE
  8. ASPIRIN [Concomitant]
     Active Substance: ASPIRIN
  9. DILTIAZEM [Concomitant]
     Active Substance: DILTIAZEM
  10. HUMULIN NOS [Concomitant]
     Active Substance: INSULIN HUMAN
  11. ISOSORBIDE [Concomitant]
     Active Substance: ISOSORBIDE
  12. levothvroxine [Concomitant]
  13. METOPROLOL [Concomitant]
     Active Substance: METOPROLOL
  14. VICTOZA [Concomitant]
     Active Substance: LIRAGLUTIDE
  15. ZETIA [Concomitant]
     Active Substance: EZETIMIBE
  16. TORSEMIDE [Concomitant]
     Active Substance: TORSEMIDE
  17. POTASSIUM [Concomitant]
     Active Substance: POTASSIUM
  18. PRAZOSIN [Concomitant]
     Active Substance: PRAZOSIN

REACTIONS (1)
  - Death [None]

NARRATIVE: CASE EVENT DATE: 20211026
